FAERS Safety Report 4974955-0 (Version None)
Quarter: 2006Q2

REPORT INFORMATION
  Report Type: 
  Country: None (occurrence: None)
  Receive Date: 20060414
  Receipt Date: 20060414
  Transmission Date: 20061013
  Serious: Yes (Hospitalization, Other)
  Sender: FDA-Public Use
  Company Number: None

PATIENT
  Sex: Female
  Weight: 75.9 kg

DRUGS (5)
  1. CYCLOPHOSPHAMIDE [Suspect]
     Indication: BREAST CANCER
     Dosage: 1050 MG
     Dates: start: 20060306, end: 20060306
  2. DOXORUBICIN HCL [Suspect]
     Dosage: 105 MG
     Dates: start: 20060306, end: 20060306
  3. LIPITOR [Concomitant]
  4. NEXIUM [Concomitant]
  5. ZETIA [Concomitant]

REACTIONS (1)
  - LIVER FUNCTION TEST ABNORMAL [None]
